FAERS Safety Report 7401722-0 (Version None)
Quarter: 2011Q1

REPORT INFORMATION
  Report Type: 
  Country: None (occurrence: None)
  Receive Date: 20110301
  Receipt Date: 20100722
  Transmission Date: 20110831
  Serious: Yes (Other)
  Sender: FDA-Public Use
  Company Number: US-JNJFOC-20100507622

PATIENT
  Age: 23 Month
  Sex: Male
  Weight: 14.5151 kg

DRUGS (2)
  1. CHILDREN'S TYLENOL SUSPENSION [Suspect]
     Indication: PYREXIA
     Dosage: 3-4 DOSES
     Dates: start: 20100503, end: 20100504
  2. CHILDREN'S MOTRIN [Suspect]
     Indication: PYREXIA
     Dosage: EVERY 8 HOURS- 2 DOSES
     Dates: start: 20100503, end: 20100504

REACTIONS (2)
  - DRUG INEFFECTIVE [None]
  - PRODUCT QUALITY ISSUE [None]
